FAERS Safety Report 6445980-8 (Version None)
Quarter: 2009Q4

REPORT INFORMATION
  Report Type: 
  Country: None (occurrence: None)
  Receive Date: 20091119
  Receipt Date: 20090508
  Transmission Date: 20100525
  Serious: No
  Sender: FDA-Public Use
  Company Number: A0784362A

PATIENT
  Age: 67 Year
  Sex: Female

DRUGS (1)
  1. BUPROPION HCL [Suspect]
     Indication: ANXIETY
     Dosage: 150MG TWICE PER DAY
     Dates: start: 20080101, end: 20090101

REACTIONS (6)
  - ABDOMINAL PAIN UPPER [None]
  - DYSURIA [None]
  - MALAISE [None]
  - MICTURITION DISORDER [None]
  - NAUSEA [None]
  - TREMOR [None]
